FAERS Safety Report 9419772 (Version 2)
Quarter: 2013Q3

REPORT INFORMATION
  Report Type: Report from Study
  Country: JP (occurrence: JP)
  Receive Date: 20130725
  Receipt Date: 20130817
  Transmission Date: 20140515
  Serious: Yes (Hospitalization)
  Sender: FDA-Public Use
  Company Number: JP-ROCHE-1251844

PATIENT
  Age: 36 Year
  Sex: Female
  Weight: 56 kg

DRUGS (6)
  1. TOCILIZUMAB [Suspect]
     Indication: SCLERODERMA
     Route: 041
     Dates: start: 20130524, end: 20130524
  2. TOCILIZUMAB [Suspect]
     Indication: OFF LABEL USE
  3. OMEPRAL [Concomitant]
     Indication: GASTROOESOPHAGEAL REFLUX DISEASE
     Route: 048
     Dates: start: 20091111, end: 20130620
  4. JUVELA N [Concomitant]
     Indication: RAYNAUD^S PHENOMENON
     Route: 048
     Dates: start: 20090930
  5. BAYASPIRIN [Concomitant]
     Indication: RAYNAUD^S PHENOMENON
     Route: 048
     Dates: start: 20110210
  6. PROCYLIN [Concomitant]
     Indication: RAYNAUD^S PHENOMENON
     Route: 048
     Dates: start: 20130111

REACTIONS (2)
  - Lymphadenitis [Recovered/Resolved]
  - Hepatic steatosis [Unknown]
